FAERS Safety Report 9106244 (Version 1)
Quarter: 2013Q1

REPORT INFORMATION
  Report Type: Spontaneous
  Country: GB (occurrence: GB)
  Receive Date: 20130221
  Receipt Date: 20130221
  Transmission Date: 20140127
  Serious: Yes (Hospitalization, Disabling)
  Sender: FDA-Public Use
  Company Number: GB-TEVA-385612ISR

PATIENT
  Age: 70 Year
  Sex: Male

DRUGS (8)
  1. WARFARIN [Suspect]
     Indication: ATRIAL FIBRILLATION
     Dosage: VARIES ACCORDING TO INR
     Route: 048
  2. AMIODARONE [Concomitant]
     Dosage: 200 MILLIGRAM DAILY; IN THE MORNING
  3. PRAVASTATIN [Concomitant]
     Dosage: 40 MILLIGRAM DAILY; AT NIGHT
  4. DIGOXIN [Concomitant]
     Dosage: 125 MICROGRAM DAILY; IN THE MORNING
  5. SALBUTAMOL [Concomitant]
     Dosage: TWO PUFFS AS NECESSARY
  6. SERETIDE [Concomitant]
     Dosage: 4 DOSAGE FORMS DAILY;
  7. LEVOTHYROXINE [Concomitant]
     Dosage: 75 MICROGRAM DAILY; IN THE MORNING
  8. RAMIPRIL [Concomitant]
     Dosage: 1.25 MILLIGRAM DAILY; IN THE MORNING

REACTIONS (8)
  - Spinal subdural haematoma [Not Recovered/Not Resolved]
  - Back pain [Unknown]
  - Paraplegia [Recovering/Resolving]
  - Gait disturbance [Not Recovered/Not Resolved]
  - International normalised ratio increased [Unknown]
  - Urinary retention [Recovered/Resolved]
  - Nosocomial infection [Recovered/Resolved]
  - Intestinal obstruction [Unknown]
